FAERS Safety Report 16757238 (Version 1)
Quarter: 2019Q3

REPORT INFORMATION
  Report Type: Spontaneous
  Country: FR (occurrence: FR)
  Receive Date: 20190829
  Receipt Date: 20190829
  Transmission Date: 20191005
  Serious: Yes (Life-Threatening)
  Sender: FDA-Public Use
  Company Number: FR-TEVA-2019-FR-1098859

PATIENT
  Age: 44 Year
  Sex: Female

DRUGS (2)
  1. FLANID [Concomitant]
     Active Substance: TIAPROFENIC ACID
     Route: 048
  2. AMOXICILLINE BASE [Suspect]
     Active Substance: AMOXICILLIN
     Indication: TONSILLITIS
     Route: 048
     Dates: start: 20190415, end: 20190415

REACTIONS (3)
  - Malaise [Recovered/Resolved]
  - Anamnestic reaction [Recovered/Resolved]
  - Hypotension [Recovered/Resolved]

NARRATIVE: CASE EVENT DATE: 20190415
